FAERS Safety Report 15782358 (Version 1)
Quarter: 2018Q4

REPORT INFORMATION
  Report Type: Spontaneous
  Country: US (occurrence: US)
  Receive Date: 20181212
  Receipt Date: 20181212
  Transmission Date: 20190205
  Serious: Yes (Hospitalization)
  Sender: FDA-Public Use
  Company Number: None

PATIENT
  Age: 67 Year
  Sex: Female
  Weight: 86.18 kg

DRUGS (5)
  1. SIMVASTATIN. [Concomitant]
     Active Substance: SIMVASTATIN
  2. JANUVIA [Concomitant]
     Active Substance: SITAGLIPTIN PHOSPHATE
  3. FARXIGA [Suspect]
     Active Substance: DAPAGLIFLOZIN PROPANEDIOL
     Indication: TYPE 2 DIABETES MELLITUS
     Dosage: ?          QUANTITY:1 PILL;OTHER FREQUENCY:ONCE DAILY;?
     Route: 048
     Dates: start: 20180802, end: 20181107
  4. VITAMIN D3 [Concomitant]
     Active Substance: CHOLECALCIFEROL
  5. IRBESARTAN. [Concomitant]
     Active Substance: IRBESARTAN

REACTIONS (3)
  - Malaise [None]
  - Asthenia [None]
  - Bedridden [None]
